FAERS Safety Report 15003428 (Version 1)
Quarter: 2018Q2

REPORT INFORMATION
  Report Type: Spontaneous
  Country: AU (occurrence: AU)
  Receive Date: 20180613
  Receipt Date: 20180613
  Transmission Date: 20180711
  Serious: Yes (Disabling, Other)
  Sender: FDA-Public Use
  Company Number: AU-TEVA-2018-AU-907150

PATIENT
  Sex: Male

DRUGS (4)
  1. LORAZEPAM. [Concomitant]
     Active Substance: LORAZEPAM
  2. DESVENLAFAXINE. [Suspect]
     Active Substance: DESVENLAFAXINE
     Route: 065
  3. QUETIAPINE. [Suspect]
     Active Substance: QUETIAPINE
     Route: 065
  4. OLANZAPINE. [Suspect]
     Active Substance: OLANZAPINE
     Route: 065

REACTIONS (8)
  - Troponin increased [Unknown]
  - Delusion [Unknown]
  - Anxiety [Unknown]
  - C-reactive protein decreased [Unknown]
  - Hallucination, auditory [Unknown]
  - Somatic delusion [Unknown]
  - Physical disability [Unknown]
  - Loss of personal independence in daily activities [Unknown]
